FAERS Safety Report 24934720 (Version 1)
Quarter: 2025Q1

REPORT INFORMATION
  Report Type: Report from Study
  Country: US (occurrence: US)
  Receive Date: 20250206
  Receipt Date: 20250206
  Transmission Date: 20250409
  Serious: No
  Sender: EXELIXIS
  Company Number: US-EXELIXIS-EXL-2024-001714

PATIENT
  Age: 48 Year
  Sex: Female
  Weight: 106.7 kg

DRUGS (16)
  1. CABOMETYX [Suspect]
     Active Substance: CABOZANTINIB S-MALATE
     Indication: Renal cell carcinoma
     Dosage: 60 MG, QD
     Route: 048
     Dates: start: 20241019
  2. IMODIUM [Concomitant]
     Active Substance: LOPERAMIDE HYDROCHLORIDE
  3. CALCIUM\VITAMIN D [Concomitant]
     Active Substance: CALCIUM\VITAMIN D
  4. FERROUS SULFATE [Concomitant]
     Active Substance: FERROUS SULFATE
  5. FISH OIL [Concomitant]
     Active Substance: FISH OIL
  6. CHONDROITIN SULFATE (BOVINE)\GLUCOSAMINE HYDROCHLORIDE [Concomitant]
     Active Substance: CHONDROITIN SULFATE (BOVINE)\GLUCOSAMINE HYDROCHLORIDE
  7. ZYRTEC [Concomitant]
     Active Substance: CETIRIZINE HYDROCHLORIDE
  8. ASIAN GINSENG [Concomitant]
     Active Substance: ASIAN GINSENG
  9. PANTOPRAZOLE [Concomitant]
     Active Substance: PANTOPRAZOLE
  10. MOUNJARO [Concomitant]
     Active Substance: TIRZEPATIDE
  11. BUPROPION [Concomitant]
     Active Substance: BUPROPION
  12. CLOTRIMAZOLE [Concomitant]
     Active Substance: CLOTRIMAZOLE
  13. MUPIROCIN [Concomitant]
     Active Substance: MUPIROCIN
  14. AMLODIPINE [Concomitant]
     Active Substance: AMLODIPINE BESYLATE
  15. NYSTATIN [Concomitant]
     Active Substance: NYSTATIN
  16. OTHER FRUIT+VEG BALANCE [Concomitant]

REACTIONS (6)
  - Burning sensation mucosal [Unknown]
  - Gastrooesophageal reflux disease [Not Recovered/Not Resolved]
  - Buttock injury [Unknown]
  - Stomatitis [Unknown]
  - Decreased appetite [Unknown]
  - Fungal infection [Unknown]

NARRATIVE: CASE EVENT DATE: 20241101
